FAERS Safety Report 9436285 (Version 1)
Quarter: 2013Q3

REPORT INFORMATION
  Report Type: Spontaneous
  Country: CA (occurrence: CA)
  Receive Date: 20130802
  Receipt Date: 20130802
  Transmission Date: 20140515
  Serious: Yes (Hospitalization, Other)
  Sender: FDA-Public Use
  Company Number: CA-PAR PHARMACEUTICAL, INC-2013SCPR006051

PATIENT
  Sex: 0

DRUGS (13)
  1. DILTIAZEM HCL [Suspect]
     Indication: PRODUCT USED FOR UNKNOWN INDICATION
     Dosage: 120 MG, / DAY
     Route: 065
  2. FUROSEMIDE /00032602/ [Suspect]
     Indication: RIGHT VENTRICULAR FAILURE
     Dosage: 120 MG, BID
     Route: 048
  3. FUROSEMIDE /00032602/ [Suspect]
     Dosage: 60 MG, BID
  4. FUROSEMIDE /00032602/ [Suspect]
     Dosage: 20 TO 40 MG, OD
     Route: 048
  5. REVATIO [Suspect]
     Indication: PULMONARY HYPERTENSION
     Dosage: 20 MG, TID
     Route: 048
  6. ASPIRIN [Concomitant]
     Indication: PRODUCT USED FOR UNKNOWN INDICATION
     Dosage: 81 MG, / DAY
     Route: 065
  7. CLOPIDOGREL                        /01220704/ [Concomitant]
     Indication: PRODUCT USED FOR UNKNOWN INDICATION
     Dosage: 75 MG, / DAY
     Route: 065
  8. ATORVASTATIN                       /01326102/ [Concomitant]
     Indication: PRODUCT USED FOR UNKNOWN INDICATION
     Dosage: 40 MG, / DAY
     Route: 065
  9. FLUTICASONE W/SALMETEROL [Concomitant]
     Indication: PRODUCT USED FOR UNKNOWN INDICATION
     Dosage: UNK, BID
     Route: 045
  10. TIOTROPIUM [Concomitant]
     Indication: PRODUCT USED FOR UNKNOWN INDICATION
     Dosage: 18 MCG, / DAY
     Route: 045
  11. ACETYLCYSTEINE                     /00082802/ [Concomitant]
     Indication: PRODUCT USED FOR UNKNOWN INDICATION
     Dosage: 600 MG, TID
     Route: 065
  12. DOMPERIDONE                        /00498202/ [Concomitant]
     Indication: PRODUCT USED FOR UNKNOWN INDICATION
     Dosage: 10 MG, BID
     Route: 065
  13. VITAMIN B12                        /00056201/ [Concomitant]
     Indication: SUPPLEMENTATION THERAPY
     Dosage: UNK, UNKNOWN
     Route: 065

REACTIONS (6)
  - Drug interaction [Unknown]
  - Ototoxicity [Recovered/Resolved]
  - Deafness bilateral [Recovered/Resolved]
  - Local swelling [Unknown]
  - Tinnitus [Unknown]
  - Dyspnoea [Recovered/Resolved]
